FAERS Safety Report 5522084-X (Version None)
Quarter: 2007Q4

REPORT INFORMATION
  Report Type: 
  Country: None (occurrence: None)
  Receive Date: 20071115
  Receipt Date: 20071105
  Transmission Date: 20080405
  Serious: Yes (Other)
  Sender: FDA-Public Use
  Company Number: GXKR2007BR09529

PATIENT
  Age: 58 Year
  Sex: Male
  Weight: 120 kg

DRUGS (4)
  1. ENALAPRIL MALEATE (NGX)(ENALAPRIL MALEATE) UNKNOWN, 10MG [Suspect]
     Indication: LEFT VENTRICULAR DYSFUNCTION
     Dosage: 10 MG, BID, ORAL
     Route: 048
     Dates: end: 20071104
  2. ALLOPURINOL [Concomitant]
  3. PROFENID (KETOPROFEN) UNKNOWN [Concomitant]
  4. COLCHICINE (COLCHICINE) UNKNOWN [Concomitant]

REACTIONS (5)
  - AMNESIA [None]
  - CONFUSIONAL STATE [None]
  - CONSTIPATION [None]
  - ERECTILE DYSFUNCTION [None]
  - INSOMNIA [None]
